FAERS Safety Report 24770761 (Version 1)
Quarter: 2024Q4

REPORT INFORMATION
  Report Type: Spontaneous
  Country: IT (occurrence: IT)
  Receive Date: 20241224
  Receipt Date: 20241224
  Transmission Date: 20250114
  Serious: Yes (Death)
  Sender: ACCORD
  Company Number: None

PATIENT
  Age: 68 Year
  Sex: Male
  Weight: 69 kg

DRUGS (3)
  1. FLUOROURACIL [Suspect]
     Active Substance: FLUOROURACIL
     Indication: Gastric cancer stage IV
     Dosage: 585 MG IV ON 11/09, 2 AND 23/10. 3513 MG I.C. 44 HOURS ON 11/09 AND?2/10
     Dates: start: 20240911, end: 20241023
  2. NIVOLUMAB [Suspect]
     Active Substance: NIVOLUMAB
     Indication: Gastric cancer stage IV
     Dosage: 240 MG EVERY 14 DAYS
     Dates: start: 20241002, end: 20241023
  3. OXALIPLATIN [Suspect]
     Active Substance: OXALIPLATIN
     Indication: Gastric cancer stage IV
     Dosage: 100 MG/M2 EVERY 21 DAYS: DOSE ADMINISTERED REDUCED BY 20%
     Dates: start: 20240911, end: 20241023

REACTIONS (1)
  - Sudden cardiac death [Fatal]

NARRATIVE: CASE EVENT DATE: 20241023
